FAERS Safety Report 6130748-2 (Version None)
Quarter: 2009Q1

REPORT INFORMATION
  Report Type: 
  Country: None (occurrence: None)
  Receive Date: 20090323
  Receipt Date: 20090309
  Transmission Date: 20090719
  Serious: Yes (Other)
  Sender: FDA-Public Use
  Company Number: CHPA2009US06369

PATIENT
  Age: 70 Year
  Sex: Female

DRUGS (1)
  1. DESENEX [Suspect]
     Indication: HYPERHIDROSIS
     Dosage: TOPICAL
     Route: 061

REACTIONS (3)
  - DIABETES MELLITUS [None]
  - INTENTIONAL DRUG MISUSE [None]
  - OFF LABEL USE [None]
